FAERS Safety Report 14106525 (Version 1)
Quarter: 2017Q4

REPORT INFORMATION
  Report Type: Spontaneous
  Country: IN (occurrence: IN)
  Receive Date: 20171019
  Receipt Date: 20171019
  Transmission Date: 20180321
  Serious: Yes (Other)
  Sender: FDA-Public Use
  Company Number: IN-TORRENT-00001382

PATIENT
  Sex: Male

DRUGS (5)
  1. QUETIAPINE. [Suspect]
     Active Substance: QUETIAPINE
  2. ARIPIPRAZOLE. [Suspect]
     Active Substance: ARIPIPRAZOLE
  3. TRIFLUPERAZINE [Suspect]
     Active Substance: TRIFLUOPERAZINE\TRIFLUOPERAZINE HYDROCHLORIDE
  4. CLOZAPINE. [Suspect]
     Active Substance: CLOZAPINE
  5. RISPERIDONE. [Suspect]
     Active Substance: RISPERIDONE

REACTIONS (6)
  - Eosinophilia [Unknown]
  - Oculogyric crisis [Unknown]
  - Lethargy [Unknown]
  - Withdrawal syndrome [Unknown]
  - Therapeutic response decreased [Unknown]
  - Sedation [Unknown]
